FAERS Safety Report 16637597 (Version 1)
Quarter: 2019Q3

REPORT INFORMATION
  Report Type: Spontaneous
  Country: US (occurrence: US)
  Receive Date: 20190726
  Receipt Date: 20190726
  Transmission Date: 20191004
  Serious: No
  Sender: FDA-Public Use
  Company Number: US-PERRIGO-18US014868

PATIENT
  Age: 76 Year
  Sex: Male
  Weight: 83.9 kg

DRUGS (3)
  1. ARTHRITIS RELIEF [Concomitant]
     Active Substance: MENTHOL
     Indication: ARTHRITIS
     Dosage: UNK
     Route: 065
     Dates: start: 2018
  2. VITAMINS NOS [Concomitant]
     Active Substance: VITAMINS
     Indication: SUPPLEMENTATION THERAPY
     Route: 065
  3. MINOXIDIL. [Suspect]
     Active Substance: MINOXIDIL
     Indication: ALOPECIA
     Dosage: UNKNOWN, BID
     Route: 061
     Dates: start: 201809, end: 20181219

REACTIONS (1)
  - Application site papules [Not Recovered/Not Resolved]

NARRATIVE: CASE EVENT DATE: 201809
